FAERS Safety Report 17361948 (Version 1)
Quarter: 2020Q1

REPORT INFORMATION
  Report Type: Spontaneous
  Country: US (occurrence: US)
  Receive Date: 20200117
  Receipt Date: 20200117
  Transmission Date: 20200409
  Serious: Yes (Death)
  Sender: FDA-Public Use
  Company Number: None

PATIENT
  Age: 69 Year
  Sex: Female

DRUGS (13)
  1. ENTACAVIR 0.5MG [Suspect]
     Active Substance: ENTECAVIR
     Indication: MYELOFIBROSIS
     Dosage: ?          OTHER DOSE:0.5;?
     Route: 048
     Dates: start: 20180204
  2. FUROSEMIDE. [Concomitant]
     Active Substance: FUROSEMIDE
  3. VITAMIN D3 [Concomitant]
     Active Substance: CHOLECALCIFEROL
  4. GLIPIZIDE. [Concomitant]
     Active Substance: GLIPIZIDE
  5. FLUOROMETHOL [Concomitant]
     Active Substance: FLUOROMETHOLONE
  6. TIMOLOL. [Concomitant]
     Active Substance: TIMOLOL
  7. HUMULIN NOS [Concomitant]
     Active Substance: INSULIN HUMAN
  8. PREDNISONE. [Concomitant]
     Active Substance: PREDNISONE
  9. VALACYCLOVIR [Concomitant]
     Active Substance: VALACYCLOVIR HYDROCHLORIDE
  10. FENTANYL. [Concomitant]
     Active Substance: FENTANYL
  11. NOVOLOG [Concomitant]
     Active Substance: INSULIN ASPART
  12. PANTOPRAZOLE [Concomitant]
     Active Substance: PANTOPRAZOLE
  13. HYDROMORPHONE [Concomitant]
     Active Substance: HYDROMORPHONE

REACTIONS (1)
  - Death [None]
